FAERS Safety Report 9329396 (Version 1)
Quarter: 2013Q2

REPORT INFORMATION
  Report Type: Spontaneous
  Country: US (occurrence: US)
  Receive Date: 20130604
  Receipt Date: 20130604
  Transmission Date: 20140414
  Serious: No
  Sender: FDA-Public Use
  Company Number: US-SANOFI-AVENTIS-2012SA091692

PATIENT
  Age: 66 Year
  Sex: Female
  Weight: 111 kg

DRUGS (14)
  1. SOLOSTAR [Suspect]
     Indication: TYPE 2 DIABETES MELLITUS
     Dosage: 42 U IN AM  AND 50 U IN PM
  2. LANTUS SOLOSTAR [Suspect]
     Indication: TYPE 2 DIABETES MELLITUS
     Dosage: 42 U IN AM AND 50 U IN PM
  3. FUROSEMIDE [Concomitant]
  4. METFORMIN [Concomitant]
  5. LORAZEPAM [Concomitant]
  6. LEVOTHYROXINE [Concomitant]
  7. ZYPREXA [Concomitant]
  8. METOPROLOL [Concomitant]
     Dosage: 25 MG NOON AND 25 MG HS
  9. KLOR-CON [Concomitant]
     Dosage: 1 AM AND 1 PM
  10. NEXIUM /UNK/ [Concomitant]
     Dosage: 40 MG EVENING
  11. SPIRONOLACTONE [Concomitant]
     Dosage: 100 MG AM + 100 MG PM
  12. NIASPAN [Concomitant]
     Dosage: 500 MG 1Q HS
  13. MAGNESIUM OXIDE [Concomitant]
     Dosage: 1 NOON-1 HS
  14. PRAVASTATIN [Concomitant]

REACTIONS (1)
  - Dizziness [Recovered/Resolved]
